FAERS Safety Report 7535893-2 (Version None)
Quarter: 2011Q2

REPORT INFORMATION
  Report Type: 
  Country: None (occurrence: None)
  Receive Date: 20110607
  Receipt Date: 20110607
  Transmission Date: 20111010
  Serious: Yes (Life-Threatening)
  Sender: FDA-Public Use
  Company Number: None

PATIENT
  Age: 64 Year
  Sex: Female
  Weight: 81.6475 kg

DRUGS (1)
  1. CHANTIX [Suspect]
     Indication: SMOKING CESSATION THERAPY
     Dosage: ONE PILL TWICE A DAY PO
     Route: 048
     Dates: start: 20110319, end: 20110525

REACTIONS (3)
  - DEPRESSION [None]
  - ANXIETY [None]
  - SUICIDAL IDEATION [None]
